FAERS Safety Report 7933185-0 (Version None)
Quarter: 2011Q4

REPORT INFORMATION
  Report Type: 
  Country: None (occurrence: None)
  Receive Date: 20111121
  Receipt Date: 20111121
  Transmission Date: 20120403
  Serious: Yes (Death)
  Sender: FDA-Public Use
  Company Number: None

PATIENT
  Sex: Male
  Weight: 62.1428 kg

DRUGS (1)
  1. ZOMETA [Suspect]

REACTIONS (2)
  - THROMBOCYTOPENIA [None]
  - DISSEMINATED INTRAVASCULAR COAGULATION [None]
